FAERS Safety Report 13057435 (Version 4)
Quarter: 2017Q1

REPORT INFORMATION
  Report Type: Spontaneous
  Country: FR (occurrence: FR)
  Receive Date: 20161223
  Receipt Date: 20170208
  Transmission Date: 20170428
  Serious: Yes (Hospitalization)
  Sender: FDA-Public Use
  Company Number: FR-ASTRAZENECA-2016SF31455

PATIENT
  Age: 968 Month
  Sex: Male
  Weight: 78 kg

DRUGS (2)
  1. UROREC [Concomitant]
     Active Substance: SILODOSIN
     Indication: PROSTATE CANCER
  2. TAGRISSO [Suspect]
     Active Substance: OSIMERTINIB
     Indication: LUNG NEOPLASM MALIGNANT
     Route: 048
     Dates: start: 20161108, end: 20161210

REACTIONS (3)
  - Malignant neoplasm progression [Recovering/Resolving]
  - Pleural effusion [Recovering/Resolving]
  - Interstitial lung disease [Recovered/Resolved]

NARRATIVE: CASE EVENT DATE: 201612
